FAERS Safety Report 7028421-1 (Version None)
Quarter: 2010Q4

REPORT INFORMATION
  Report Type: 
  Country: None (occurrence: None)
  Receive Date: 20101005
  Receipt Date: 20100923
  Transmission Date: 20110411
  Serious: Yes (Other)
  Sender: FDA-Public Use
  Company Number: IT-PFIZER INC-2010120936

PATIENT
  Sex: Female

DRUGS (1)
  1. PREPIDIL [Suspect]
     Indication: LABOUR INDUCTION
     Route: 009

REACTIONS (4)
  - ANAPHYLACTOID SYNDROME OF PREGNANCY [None]
  - INCORRECT ROUTE OF DRUG ADMINISTRATION [None]
  - UTERINE HAEMORRHAGE [None]
  - UTERINE HYPERTONUS [None]
